FAERS Safety Report 8192630-9 (Version None)
Quarter: 2012Q1

REPORT INFORMATION
  Report Type: 
  Country: None (occurrence: None)
  Receive Date: 20120308
  Receipt Date: 20120301
  Transmission Date: 20120608
  Serious: Yes (Other)
  Sender: FDA-Public Use
  Company Number: US-BAYER-2011-076131

PATIENT
  Age: 24 Year
  Sex: Female
  Weight: 77 kg

DRUGS (10)
  1. PHENERGAN [Concomitant]
     Indication: NAUSEA
     Dosage: PRN
     Dates: start: 20090826
  2. IBUPROFEN [Concomitant]
     Indication: PYREXIA
  3. ARMODAFINIL [Concomitant]
     Indication: FUNGAL INFECTION
     Dosage: AT ONSET OF YEAST
     Route: 048
     Dates: start: 20090826
  4. ACETAMINOPHEN [Concomitant]
     Indication: PYREXIA
  5. CELEXA [Concomitant]
     Indication: DEPRESSION
     Dosage: DAILY DOSE 40 MG
     Route: 048
  6. PHENERGAN [Concomitant]
     Indication: VOMITING
  7. YAZ [Suspect]
     Indication: CONTRACEPTION
     Dosage: UNK
     Dates: start: 20080801, end: 20090501
  8. ALLEGRA-D 12 HOUR [Concomitant]
     Dosage: UNK UNK, TID
     Route: 048
     Dates: start: 20090723
  9. LORTAB [Concomitant]
     Indication: PAIN
     Dosage: 5MG/1-2 EVERY 4-6 HOURS
     Route: 048
     Dates: start: 20090826
  10. ZITHROMAX [Concomitant]
     Dosage: UNK
     Dates: start: 20090826

REACTIONS (9)
  - CHOLECYSTITIS [None]
  - FEAR OF DISEASE [None]
  - EMOTIONAL DISTRESS [None]
  - GALLBLADDER DISORDER [None]
  - INJURY [None]
  - PAIN [None]
  - ANXIETY [None]
  - PSYCHOLOGICAL TRAUMA [None]
  - DYSPEPSIA [None]
